FAERS Safety Report 8022111-4 (Version None)
Quarter: 2012Q1

REPORT INFORMATION
  Report Type: 
  Country: None (occurrence: None)
  Receive Date: 20120104
  Receipt Date: 20111220
  Transmission Date: 20120608
  Serious: Yes (Hospitalization, Other)
  Sender: FDA-Public Use
  Company Number: US-COVIDIEN/TYCO HEALTHCARE/MALLINCKRODT-T201102997

PATIENT
  Age: 29 Year
  Sex: Female

DRUGS (3)
  1. EXALGO [Suspect]
     Indication: BREAKTHROUGH PAIN
     Dosage: UP TO 40 MG QD
     Route: 048
  2. MORPHINE [Suspect]
     Indication: BREAKTHROUGH PAIN
     Dosage: 100 MG, BID
  3. HYDROMORPHONE HCL [Suspect]
     Indication: PAIN
     Dosage: PCA

REACTIONS (5)
  - PAIN [None]
  - HYPERAESTHESIA [None]
  - INSOMNIA [None]
  - DRUG TOLERANCE [None]
  - DRUG INEFFECTIVE [None]
